FAERS Safety Report 11173567 (Version 1)
Quarter: 2015Q2

REPORT INFORMATION
  Report Type: Report from Study
  Country: JP (occurrence: JP)
  Receive Date: 20150609
  Receipt Date: 20150609
  Transmission Date: 20150821
  Serious: Yes (Other)
  Sender: FDA-Public Use
  Company Number: PHJP2015JP005720

PATIENT
  Sex: Male
  Weight: 51 kg

DRUGS (3)
  1. TRAZENTA [Concomitant]
     Active Substance: LINAGLIPTIN
     Indication: DIABETES MELLITUS
     Dosage: 5 MG, QD
     Route: 048
     Dates: end: 20131024
  2. EXELON [Suspect]
     Active Substance: RIVASTIGMINE TARTRATE
     Dosage: PATCH 5 (CM2)
     Route: 062
     Dates: start: 20130925, end: 20131024
  3. EXELON [Suspect]
     Active Substance: RIVASTIGMINE TARTRATE
     Indication: DEMENTIA ALZHEIMER^S TYPE
     Dosage: PATCH 2.5 (CM2)
     Route: 062
     Dates: start: 20130826, end: 20130924

REACTIONS (1)
  - Delirium [Unknown]
